FAERS Safety Report 14853564 (Version 1)
Quarter: 2018Q2

REPORT INFORMATION
  Report Type: Spontaneous
  Country: LS (occurrence: LS)
  Receive Date: 20180507
  Receipt Date: 20180507
  Transmission Date: 20180711
  Serious: Yes (Death, Hospitalization, Other)
  Sender: FDA-Public Use
  Company Number: PHHY2018LS001044

PATIENT
  Age: 61 Year
  Sex: Male
  Weight: 37 kg

DRUGS (8)
  1. PROTIONAMIDE [Suspect]
     Active Substance: PROTIONAMIDE
     Indication: TUBERCULOSIS
     Dosage: 500 MG, QD
     Route: 048
     Dates: start: 201803
  2. CLOFAZIMINE [Suspect]
     Active Substance: CLOFAZIMINE
     Indication: TUBERCULOSIS
     Dosage: 100 MG, QD
     Route: 048
     Dates: start: 201803
  3. MOXIFLOXACIN. [Suspect]
     Active Substance: MOXIFLOXACIN
     Indication: TUBERCULOSIS
     Dosage: 400 MG, QD
     Route: 048
     Dates: start: 201803
  4. PYRAZINAMIDE SANDOZ [Suspect]
     Active Substance: PYRAZINAMIDE
     Indication: TUBERCULOSIS
     Dosage: 200 MG, QD
     Route: 048
     Dates: start: 201803
  5. CEFTRIAXONE. [Concomitant]
     Active Substance: CEFTRIAXONE
     Indication: PNEUMONIA
     Dosage: 2 G, UNK
     Route: 042
     Dates: start: 20180328
  6. THYROXINE [Concomitant]
     Active Substance: LEVOTHYROXINE
     Indication: HYPOTHYROIDISM
     Dosage: 50 UG, UNK
     Route: 048
     Dates: start: 20180329
  7. DELTYBA [Suspect]
     Active Substance: DELAMANID
     Indication: TUBERCULOSIS
     Dosage: 200 MG, QD
     Route: 048
     Dates: start: 201803
  8. PREDNISONE. [Concomitant]
     Active Substance: PREDNISONE
     Indication: CHRONIC OBSTRUCTIVE PULMONARY DISEASE
     Dosage: 40 MG, UNK
     Route: 048
     Dates: start: 20180329

REACTIONS (12)
  - Hypoxia [Fatal]
  - Confusional state [Unknown]
  - Respiratory failure [Fatal]
  - Hypocapnia [Fatal]
  - Renal failure [Unknown]
  - Condition aggravated [Unknown]
  - Immune reconstitution inflammatory syndrome associated tuberculosis [Unknown]
  - Tuberculosis [Unknown]
  - Dilatation ventricular [Unknown]
  - PCO2 decreased [Fatal]
  - Lung disorder [Unknown]
  - Malnutrition [Unknown]

NARRATIVE: CASE EVENT DATE: 20180406
